FAERS Safety Report 9192569 (Version 1)
Quarter: 2013Q1

REPORT INFORMATION
  Report Type: Spontaneous
  Country: US (occurrence: None)
  Receive Date: 20130326
  Receipt Date: 20130326
  Transmission Date: 20140127
  Serious: Yes (Life-Threatening)
  Sender: FDA-Public Use
  Company Number: None

PATIENT
  Age: 45 Year
  Sex: Female
  Weight: 70.4 kg

DRUGS (1)
  1. SUCCINYLCHOLINE [Suspect]
     Indication: ENDOTRACHEAL INTUBATION
     Route: 042
     Dates: start: 20130214

REACTIONS (13)
  - Cardiac arrest [None]
  - Pulseless electrical activity [None]
  - Ventricular tachycardia [None]
  - Sinus tachycardia [None]
  - Extrasystoles [None]
  - Infection [None]
  - Disease complication [None]
  - No reaction on previous exposure to drug [None]
  - Chronic obstructive pulmonary disease [None]
  - Intervertebral discitis [None]
  - Extradural abscess [None]
  - Spinal cord compression [None]
  - Acute respiratory failure [None]
